FAERS Safety Report 6252360-7 (Version None)
Quarter: 2009Q2

REPORT INFORMATION
  Report Type: 
  Country: None (occurrence: None)
  Receive Date: 20090629
  Receipt Date: 20090629
  Transmission Date: 20091009
  Serious: No
  Sender: FDA-Public Use
  Company Number: None

PATIENT
  Age: 27 Year
  Sex: Female

DRUGS (2)
  1. ZICAM RAPID MELTS [Suspect]
     Indication: NASOPHARYNGITIS
     Dates: start: 20061227
  2. ZICAM RAPID MELTS [Suspect]
     Indication: NASOPHARYNGITIS
     Dates: start: 20061228

REACTIONS (2)
  - HYPOGEUSIA [None]
  - HYPOSMIA [None]
